FAERS Safety Report 4728686-2 (Version None)
Quarter: 2005Q3

REPORT INFORMATION
  Report Type: 
  Country: None (occurrence: None)
  Receive Date: 20050721
  Receipt Date: 20050526
  Transmission Date: 20060218
  Serious: No
  Sender: FDA-Public Use
  Company Number: 2005SP001048

PATIENT
  Age: 55 Year
  Sex: Male
  Weight: 117.9352 kg

DRUGS (2)
  1. LUNESTA [Suspect]
     Dosage: 2 MG;HS;ORAL
     Route: 048
     Dates: start: 20050525
  2. DIAZEPAM [Concomitant]

REACTIONS (2)
  - ABNORMAL DREAMS [None]
  - PARADOXICAL DRUG REACTION [None]
